FAERS Safety Report 5395117-1 (Version None)
Quarter: 2007Q3

REPORT INFORMATION
  Report Type: 
  Country: None (occurrence: None)
  Receive Date: 20070724
  Receipt Date: 20070713
  Transmission Date: 20080115
  Serious: Yes (Death)
  Sender: FDA-Public Use
  Company Number: US-JNJFOC-20070600206

PATIENT
  Sex: Male
  Weight: 56.93 kg

DRUGS (19)
  1. DURAGESIC-100 [Suspect]
     Route: 062
  2. DURAGESIC-100 [Suspect]
     Indication: PAIN
     Route: 062
  3. CODEINE SUL TAB [Concomitant]
     Indication: PAIN
     Route: 048
  4. MORPHINE [Concomitant]
     Indication: PAIN
     Route: 048
  5. MSIR [Concomitant]
     Dosage: AS NEEDED
     Route: 048
  6. PROTONIX [Concomitant]
     Route: 048
  7. REGLAN [Concomitant]
     Dosage: BEFORE FOOD AT BEDTIME
     Route: 048
  8. DULCOLAX [Concomitant]
     Dosage: AT BEDTIME AS NEEDED
     Route: 065
  9. PANCREASE [Concomitant]
     Route: 065
  10. COMPAZINE [Concomitant]
     Dosage: AS NEEDED
     Route: 048
  11. SAW PALMETTO [Concomitant]
     Route: 065
  12. SENOKOT [Concomitant]
     Dosage: AS NEEDED
     Route: 065
  13. METFORMIN HCL [Concomitant]
     Route: 065
  14. SPIRONOLACTONE [Concomitant]
     Route: 048
  15. LASIX [Concomitant]
     Route: 065
  16. MEGACE [Concomitant]
     Route: 065
  17. GLYCERIN [Concomitant]
     Dosage: EACH MORNING
     Route: 054
  18. MIRALAX [Concomitant]
     Dosage: 1 CAPFUL IN 8 OZ OF WATER
     Route: 048
  19. MS CONTIN [Concomitant]
     Route: 065

REACTIONS (2)
  - DRUG INEFFECTIVE [None]
  - PANCREATIC CARCINOMA [None]
